FAERS Safety Report 14211971 (Version 1)
Quarter: 2017Q4

REPORT INFORMATION
  Report Type: Report from Study
  Country: US (occurrence: US)
  Receive Date: 20171121
  Receipt Date: 20171121
  Transmission Date: 20180321
  Serious: No
  Sender: FDA-Public Use
  Company Number: US-LEADIANT BIOSCIENCES INC-2017STPI000046

PATIENT
  Sex: Male

DRUGS (13)
  1. PROCYSBI [Concomitant]
     Active Substance: CYSTEAMINE BITARTRATE
  2. SYNTHROID [Concomitant]
     Active Substance: LEVOTHYROXINE SODIUM
  3. KEPPRA [Concomitant]
     Active Substance: LEVETIRACETAM
  4. PREDNISONE. [Concomitant]
     Active Substance: PREDNISONE
  5. NOVOLIN [Concomitant]
     Active Substance: INSULIN HUMAN
  6. MYFORTIC [Concomitant]
     Active Substance: MYCOPHENOLATE SODIUM
  7. MULTIVITAMIN                       /00097801/ [Concomitant]
     Active Substance: VITAMINS
  8. CYSTARAN [Suspect]
     Active Substance: CYSTEAMINE HYDROCHLORIDE
     Indication: CORNEAL DEPOSITS
     Dosage: 1 ML, EVERY HOUR WHILE AWAKE
     Dates: start: 20140903
  9. METOPROLOL. [Concomitant]
     Active Substance: METOPROLOL
  10. PROGRAF [Concomitant]
     Active Substance: TACROLIMUS\TACROLIMUS ANHYDROUS
  11. ANDROGEL [Concomitant]
     Active Substance: TESTOSTERONE
  12. OMEPRAZOLE. [Concomitant]
     Active Substance: OMEPRAZOLE
  13. BACTRIM [Concomitant]
     Active Substance: SULFAMETHOXAZOLE\TRIMETHOPRIM

REACTIONS (1)
  - Eye irritation [Not Recovered/Not Resolved]
